FAERS Safety Report 9288436 (Version 1)
Quarter: 2013Q2

REPORT INFORMATION
  Report Type: Spontaneous
  Country: JP (occurrence: JP)
  Receive Date: 20130514
  Receipt Date: 20130514
  Transmission Date: 20140414
  Serious: Yes (Other)
  Sender: FDA-Public Use
  Company Number: JP-ABBOTT-13P-087-1088876-00

PATIENT
  Age: 86 Year
  Sex: Male

DRUGS (1)
  1. LEUPLIN SR [Suspect]
     Indication: PRODUCT USED FOR UNKNOWN INDICATION
     Route: 058
     Dates: start: 20130109, end: 20130109

REACTIONS (2)
  - Cardiac failure chronic [Unknown]
  - Malaise [Unknown]
